FAERS Safety Report 7291755-X (Version None)
Quarter: 2011Q1

REPORT INFORMATION
  Report Type: 
  Country: None (occurrence: None)
  Receive Date: 20110202
  Receipt Date: 20110124
  Transmission Date: 20110831
  Serious: Yes (Death)
  Sender: FDA-Public Use
  Company Number: 201110003

PATIENT
  Age: 46 Year
  Sex: Male

DRUGS (3)
  1. LIORESAL [Suspect]
     Indication: MUSCLE SPASTICITY
     Dosage: 60.033 MCG, DAILY, INTRATHECAL
     Route: 037
  2. MORPHINE [Concomitant]
  3. CLONIDINE [Concomitant]

REACTIONS (1)
  - INFECTION [None]
